FAERS Safety Report 23736898 (Version 1)
Quarter: 2024Q2

REPORT INFORMATION
  Report Type: Spontaneous
  Country: DE (occurrence: DE)
  Receive Date: 20240412
  Receipt Date: 20240412
  Transmission Date: 20240716
  Serious: Yes (Other)
  Sender: FDA-Public Use
  Company Number: DE-SUN PHARMACEUTICAL INDUSTRIES LTD-2024RR-441950

PATIENT
  Age: 83 Year
  Sex: Male
  Weight: 66 kg

DRUGS (8)
  1. TAMSULOSIN [Suspect]
     Active Substance: TAMSULOSIN
     Indication: Micturition urgency
     Dosage: 1-0-0
     Route: 048
     Dates: start: 20231128, end: 20231128
  2. AMLODIPINE BESYLATE [Concomitant]
     Active Substance: AMLODIPINE BESYLATE
     Indication: Blood pressure measurement
     Dosage: 1-0-0 LONGER THAN 5 YEARS
     Route: 048
  3. Valacor [Concomitant]
     Indication: Blood pressure measurement
     Dosage: 1-0-0 TAKE LONGER THAN 10 YEARS
     Route: 048
  4. SIMVASTATIN [Concomitant]
     Active Substance: SIMVASTATIN
     Indication: Vascular graft
     Dosage: 0-0-1 EVERY 2ND DAY FOR MORE THAN 5 YEARS
     Route: 048
  5. VALSARTAN [Concomitant]
     Active Substance: VALSARTAN
     Indication: Blood pressure measurement
     Dosage: 0-0-1/2 LONGER THAN 10 YEARS
     Route: 048
  6. AMIODARONE [Concomitant]
     Active Substance: AMIODARONE
     Indication: Vascular graft
     Dosage: 0-0-1/2 EVERY 2ND DAY FOR MORE THAN 5 YEARS
     Route: 048
  7. METOPROLOL SUCCINATE [Concomitant]
     Active Substance: METOPROLOL SUCCINATE
     Indication: Blood pressure measurement
     Dosage: TAKE LONGER THAN 10 YEARS 0-0-1/2
     Route: 048
  8. FALITHROM [Concomitant]
     Active Substance: PHENPROCOUMON
     Indication: Vascular graft
     Dosage: 1/2-0-0 EVERY 2ND DAY FOR MORE THAN 5 YEARS
     Route: 048

REACTIONS (4)
  - Syncope [Recovered/Resolved]
  - Gait disturbance [Recovered/Resolved]
  - Somnolence [Recovered/Resolved]
  - Dizziness [Recovered/Resolved]

NARRATIVE: CASE EVENT DATE: 20231128
